FAERS Safety Report 5072643-6 (Version None)
Quarter: 2006Q3

REPORT INFORMATION
  Report Type: 
  Country: None (occurrence: None)
  Receive Date: 20060807
  Receipt Date: 20060727
  Transmission Date: 20061208
  Serious: Yes (Hospitalization)
  Sender: FDA-Public Use
  Company Number: FR-GLAXOSMITHKLINE-B0432500A

PATIENT
  Age: 42 Year
  Sex: Male

DRUGS (2)
  1. COMBIVIR [Suspect]
     Indication: ANTIVIRAL PROPHYLAXIS
     Dosage: 2TAB PER DAY
     Route: 048
     Dates: start: 20060621, end: 20060708
  2. VIRACEPT [Suspect]
     Indication: ANTIVIRAL PROPHYLAXIS
     Dosage: 3TAB PER DAY
     Route: 048
     Dates: start: 20060621, end: 20060708

REACTIONS (4)
  - ALANINE AMINOTRANSFERASE INCREASED [None]
  - ASPARTATE AMINOTRANSFERASE INCREASED [None]
  - INFLUENZA LIKE ILLNESS [None]
  - PYREXIA [None]
